FAERS Safety Report 26001330 (Version 1)
Quarter: 2025Q4

REPORT INFORMATION
  Report Type: Spontaneous
  Country: AU (occurrence: AU)
  Receive Date: 20251105
  Receipt Date: 20251105
  Transmission Date: 20260118
  Serious: Yes (Hospitalization)
  Sender: RANBAXY
  Company Number: AU-SUN PHARMACEUTICAL INDUSTRIES INC-2025R1-534703

PATIENT
  Age: 65 Year
  Sex: Male

DRUGS (7)
  1. DOXORUBICIN [Suspect]
     Active Substance: DOXORUBICIN
     Indication: Follicular lymphoma
     Dosage: 103.5 MILLIGRAM,INTERVAL: 1 MONTH;
     Route: 042
     Dates: start: 20250526
  2. ODRONEXTAMAB [Suspect]
     Active Substance: ODRONEXTAMAB
     Indication: Follicular lymphoma
     Dosage: 0.7 MILLIGRAM, INTERVAL: 1 TOTAL
     Route: 042
     Dates: start: 20250602, end: 20250603
  3. CYCLOPHOSPHAMIDE [Suspect]
     Active Substance: CYCLOPHOSPHAMIDE
     Indication: Follicular lymphoma
     Dosage: 1552.5 MILLIGRAM, INTERVAL: 1 MONTH
     Route: 042
     Dates: start: 20250526
  4. VINCRISTINE [Suspect]
     Active Substance: VINCRISTINE
     Indication: Follicular lymphoma
     Dosage: 2 MILLIGRAM,INTERVAL: 1 MONTH
     Route: 042
     Dates: start: 20250526
  5. PREDNISOLONE [Suspect]
     Active Substance: PREDNISOLONE
     Indication: Follicular lymphoma
     Dosage: 100 MILLIGRAM, INTERVAL: 1 DAY
     Route: 048
     Dates: start: 20250526
  6. DEXAMETHASONE [Concomitant]
     Active Substance: DEXAMETHASONE
     Indication: Product used for unknown indication
     Dosage: UNK
     Route: 065
  7. Immunoglobulin [Concomitant]
     Indication: Product used for unknown indication
     Dosage: UNK
     Route: 065

REACTIONS (1)
  - Cytomegalovirus infection [Not Recovered/Not Resolved]

NARRATIVE: CASE EVENT DATE: 20250725
